FAERS Safety Report 19681763 (Version 1)
Quarter: 2021Q3

REPORT INFORMATION
  Report Type: Spontaneous
  Country: GB (occurrence: GB)
  Receive Date: 20210810
  Receipt Date: 20210810
  Transmission Date: 20211014
  Serious: Yes (Other)
  Sender: FDA-Public Use
  Company Number: GB-PURDUE PHARMA-USA-2021-0280754

PATIENT

DRUGS (2)
  1. NON?PMN OXYCODONE [Suspect]
     Active Substance: OXYCODONE
     Indication: PAIN
     Dosage: 1 MG, BOLUS
     Route: 042
  2. KETAMIN [Suspect]
     Active Substance: KETAMINE
     Indication: PAIN
     Dosage: 0.5 MG, BOLUS
     Route: 042

REACTIONS (2)
  - Post procedural infection [Unknown]
  - Hallucination [Unknown]
